FAERS Safety Report 20139708 (Version 1)
Quarter: 2021Q4

REPORT INFORMATION
  Report Type: Spontaneous
  Country: US (occurrence: None)
  Receive Date: 20211201
  Receipt Date: 20211201
  Transmission Date: 20220303
  Serious: Yes (Life-Threatening, Hospitalization)
  Sender: FDA-Public Use
  Company Number: None

PATIENT
  Age: 78 Year
  Sex: Male

DRUGS (2)
  1. REGEN-COV [Suspect]
     Active Substance: CASIRIVIMAB\IMDEVIMAB
     Indication: COVID-19
     Dates: start: 20211201, end: 20211201
  2. Regeneron-Cov [Concomitant]
     Dates: start: 20211201, end: 20211201

REACTIONS (4)
  - Loss of consciousness [None]
  - Bradycardia [None]
  - Urinary incontinence [None]
  - Infusion related reaction [None]

NARRATIVE: CASE EVENT DATE: 20211201
